FAERS Safety Report 6053128-7 (Version None)
Quarter: 2009Q1

REPORT INFORMATION
  Report Type: 
  Country: None (occurrence: None)
  Receive Date: 20090127
  Receipt Date: 20090120
  Transmission Date: 20090719
  Serious: Yes (Hospitalization)
  Sender: FDA-Public Use
  Company Number: US-ELI_LILLY_AND_COMPANY-US200901003251

PATIENT
  Sex: Male

DRUGS (3)
  1. HUMALOG [Suspect]
     Route: 058
  2. CITRACAL [Concomitant]
  3. PROTONIX [Concomitant]
     Indication: DIABETIC GASTROPARESIS

REACTIONS (5)
  - BLOOD GLUCOSE INCREASED [None]
  - DIABETIC GASTROPARESIS [None]
  - DIABETIC KETOACIDOSIS [None]
  - INFLUENZA [None]
  - ULCER [None]
